FAERS Safety Report 25230174 (Version 2)
Quarter: 2025Q2

REPORT INFORMATION
  Report Type: Spontaneous
  Country: CA (occurrence: CA)
  Receive Date: 20250423
  Receipt Date: 20250618
  Transmission Date: 20250717
  Serious: Yes (Hospitalization, Other)
  Sender: PFIZER
  Company Number: CA-PFIZER INC-202300284595

PATIENT
  Age: 19 Year
  Sex: Female

DRUGS (2)
  1. RUXIENCE [Suspect]
     Active Substance: RITUXIMAB-PVVR
     Indication: Microscopic polyangiitis
     Route: 042
     Dates: start: 20231108
  2. RUXIENCE [Suspect]
     Active Substance: RITUXIMAB-PVVR
     Route: 042
     Dates: start: 20240515

REACTIONS (4)
  - Cardiac failure [Unknown]
  - Protein-losing gastroenteropathy [Unknown]
  - Pulmonary valve replacement [Unknown]
  - Off label use [Unknown]

NARRATIVE: CASE EVENT DATE: 20231108
